FAERS Safety Report 17463453 (Version 1)
Quarter: 2020Q1

REPORT INFORMATION
  Report Type: Spontaneous
  Country: CN (occurrence: CN)
  Receive Date: 20200226
  Receipt Date: 20200226
  Transmission Date: 20200409
  Serious: Yes (Other)
  Sender: FDA-Public Use
  Company Number: CN-BAXTER-2020BAX004042

PATIENT
  Age: 50 Year
  Sex: Female
  Weight: 65 kg

DRUGS (4)
  1. PIRARUBICIN HYDROCHLORIDE [Suspect]
     Active Substance: PIRARUBICIN HYDROCHLORIDE
     Indication: NEOPLASM MALIGNANT
     Dosage: PIRARUBICIN HYDROCHLORIDE 100 MG + 5% GLUCOSE 50 ML, INFUSED
     Route: 041
     Dates: start: 20200203, end: 20200203
  2. 0.9% SODIUM CHLORIDE INJECTION [Suspect]
     Active Substance: SODIUM CHLORIDE
     Indication: MEDICATION DILUTION
     Dosage: ENDOXAN 1000 MG + 0.9% SODIUM CHLORIDE 100ML, INFUSED
     Route: 041
     Dates: start: 20200203, end: 20200203
  3. 5% GLUCOSE  INJECTION [Suspect]
     Active Substance: DEXTROSE
     Indication: MEDICATION DILUTION
     Dosage: PIRARUBICIN HYDROCHLORIDE 100 MG + 5% GLUCOSE 50 ML, INFUSED
     Route: 041
     Dates: start: 20200203, end: 20200203
  4. ENDOXAN [Suspect]
     Active Substance: CYCLOPHOSPHAMIDE
     Indication: NEOPLASM MALIGNANT
     Dosage: ENDOXAN 1000 MG + 0.9% SODIUM CHLORIDE 100ML, INFUSED
     Route: 041
     Dates: start: 20200203, end: 20200203

REACTIONS (3)
  - Nausea [Recovering/Resolving]
  - Vomiting [Recovering/Resolving]
  - White blood cell count decreased [Recovering/Resolving]

NARRATIVE: CASE EVENT DATE: 20200203
